FAERS Safety Report 17267590 (Version 1)
Quarter: 2020Q1

REPORT INFORMATION
  Report Type: Spontaneous
  Country: US (occurrence: US)
  Receive Date: 20200114
  Receipt Date: 20200114
  Transmission Date: 20200409
  Serious: Yes (Hospitalization, Other)
  Sender: FDA-Public Use
  Company Number: NVSC2020US006394

PATIENT
  Age: 60 Year
  Sex: Female

DRUGS (2)
  1. METHOTREXATE. [Suspect]
     Active Substance: METHOTREXATE
     Dosage: UNK UNK, QW
     Route: 065
  2. METHOTREXATE. [Suspect]
     Active Substance: METHOTREXATE
     Indication: PRODUCT USED FOR UNKNOWN INDICATION
     Dosage: 10 MG, QD
     Route: 065

REACTIONS (8)
  - Sepsis [Unknown]
  - Diarrhoea [Unknown]
  - Ischaemic stroke [Unknown]
  - Incorrect dose administered [Unknown]
  - Paralysis [Unknown]
  - Toxicity to various agents [Unknown]
  - Haematemesis [Unknown]
  - Pancytopenia [Recovered/Resolved]
